FAERS Safety Report 22087573 (Version 3)
Quarter: 2023Q4

REPORT INFORMATION
  Report Type: Report from Study
  Country: US (occurrence: US)
  Receive Date: 20230313
  Receipt Date: 20231013
  Transmission Date: 20240110
  Serious: Yes (Hospitalization)
  Sender: FDA-Public Use
  Company Number: US-drreddys-CLI/USA/23/0160059

PATIENT
  Age: 32 Year
  Sex: Female
  Weight: 67 kg

DRUGS (3)
  1. SAPROPTERIN DIHYDROCHLORIDE [Suspect]
     Active Substance: SAPROPTERIN DIHYDROCHLORIDE
     Indication: Amino acid level increased
     Dosage: DISSOLVE TWO 100 MG POEDER PACKET ALONG WITH THREE 500 MG IN 4 TO 8 OUNCES OF WATER OR APPLE JUICE.
     Route: 048
     Dates: start: 20230112
  2. SAPROPTERIN DIHYDROCHLORIDE [Suspect]
     Active Substance: SAPROPTERIN DIHYDROCHLORIDE
     Indication: Phenylketonuria
  3. PRENATAL U [Concomitant]
     Indication: Product used for unknown indication
     Dosage: 106.5-1 MG

REACTIONS (5)
  - Hospitalisation [Unknown]
  - Overdose [Unknown]
  - Normal newborn [Unknown]
  - Exposure during pregnancy [Unknown]
  - Product dose omission issue [Unknown]

NARRATIVE: CASE EVENT DATE: 20230901
